FAERS Safety Report 22915069 (Version 4)
Quarter: 2024Q3

REPORT INFORMATION
  Report Type: Spontaneous
  Country: RO (occurrence: RO)
  Receive Date: 20230907
  Receipt Date: 20240911
  Transmission Date: 20241017
  Serious: Yes (Other)
  Sender: CELLTRION
  Company Number: RO-CELLTRION INC.-2023RO017359

PATIENT

DRUGS (10)
  1. BEVACIZUMAB [Suspect]
     Active Substance: BEVACIZUMAB
     Indication: Hepatocellular carcinoma
     Dosage: 800 MILLIGRAM
     Route: 065
     Dates: start: 20230329
  2. ATEZOLIZUMAB [Suspect]
     Active Substance: ATEZOLIZUMAB
     Indication: Hepatocellular carcinoma
     Dosage: ON 02/AUG/2023, RECEIVED THE MOST RECENT DOSE OF STUDY DRUG PRIOR TO AE AND SAE (EVERY 3 WEEKS)
     Route: 042
     Dates: start: 20230329
  3. NORVASC [Concomitant]
     Active Substance: AMLODIPINE BESYLATE
     Dosage: 5 MILLIGRAM, QD
  4. INDAPAMIDE\PERINDOPRIL [Concomitant]
     Active Substance: INDAPAMIDE\PERINDOPRIL
     Dosage: 5 MILLIGRAM, QD
  5. URSODIOL [Concomitant]
     Active Substance: URSODIOL
     Dosage: 0.5 DAY
     Dates: start: 20230621, end: 20230823
  6. ESSENTIALE N [PHOSPHOLIPIDS] [Concomitant]
     Dosage: UNK
  7. ESSENTIALE MAX [Concomitant]
     Dosage: 0.33 DAY
     Dates: start: 20230621, end: 20230823
  8. ARGININE-SORBITOL [Concomitant]
     Dosage: UNK
     Dates: start: 20230823, end: 20230823
  9. BISOPROLOL FUMARATE [Concomitant]
     Active Substance: BISOPROLOL FUMARATE
     Dosage: 5 MILLIGRAM, QD
  10. SORAFENIB [Concomitant]
     Active Substance: SORAFENIB
     Dosage: UNK
     Dates: start: 20240109

REACTIONS (4)
  - Liver injury [Recovered/Resolved]
  - Prurigo [Recovered/Resolved with Sequelae]
  - Hand dermatitis [Recovered/Resolved]
  - Intentional product use issue [Unknown]

NARRATIVE: CASE EVENT DATE: 20230416
